FAERS Safety Report 7517945-6 (Version None)
Quarter: 2011Q2

REPORT INFORMATION
  Report Type: 
  Country: None (occurrence: None)
  Receive Date: 20110523
  Receipt Date: 20110412
  Transmission Date: 20111010
  Serious: Yes (Hospitalization)
  Sender: FDA-Public Use
  Company Number: 2011PL000065

PATIENT
  Age: 60 Year
  Sex: Female

DRUGS (8)
  1. NADONEX [Concomitant]
  2. CARFATE [Concomitant]
  3. IMURAN [Suspect]
     Indication: PRODUCT USED FOR UNKNOWN INDICATION
  4. PROCARDIA [Concomitant]
  5. HYDROCHLOROTHIAZIDE [Suspect]
     Indication: PRODUCT USED FOR UNKNOWN INDICATION
  6. LISINOPRIL [Concomitant]
  7. SAXAGLIPTIN [Suspect]
     Indication: DIABETES MELLITUS
     Dosage: 2.5 MG
     Dates: start: 20100401, end: 20100729
  8. PRILOSEC [Concomitant]

REACTIONS (8)
  - PANCREATITIS [None]
  - HAEMOGLOBIN INCREASED [None]
  - BLOOD CHLORIDE DECREASED [None]
  - RENAL FAILURE ACUTE [None]
  - BLOOD BILIRUBIN INCREASED [None]
  - HAEMATOCRIT INCREASED [None]
  - DEHYDRATION [None]
  - BLOOD SODIUM DECREASED [None]
